FAERS Safety Report 23216129 (Version 1)
Quarter: 2023Q4

REPORT INFORMATION
  Report Type: Spontaneous
  Country: US (occurrence: US)
  Receive Date: 20231122
  Receipt Date: 20231122
  Transmission Date: 20240109
  Serious: Yes (Other)
  Sender: FDA-Public Use
  Company Number: US-ENDO-CASE-0045363

PATIENT
  Sex: Female

DRUGS (8)
  1. DIAZEPAM [Suspect]
     Active Substance: DIAZEPAM
  2. ACETAMINOPHEN\OXYCODONE HYDROCHLORIDE [Suspect]
     Active Substance: ACETAMINOPHEN\OXYCODONE HYDROCHLORIDE
  3. ENDOCET [Suspect]
     Active Substance: ACETAMINOPHEN\OXYCODONE HYDROCHLORIDE
  4. PERCOCET [Suspect]
     Active Substance: ACETAMINOPHEN\OXYCODONE HYDROCHLORIDE
  5. DEPODUR [Suspect]
     Active Substance: MORPHINE SULFATE
  6. MORPHINE [Suspect]
     Active Substance: MORPHINE
  7. OXYCODONE [Suspect]
     Active Substance: OXYCODONE
  8. TEMAZEPAM [Suspect]
     Active Substance: TEMAZEPAM

REACTIONS (2)
  - Suicide attempt [Unknown]
  - Maternal exposure during pregnancy [Unknown]
